FAERS Safety Report 5462471-1 (Version None)
Quarter: 2007Q3

REPORT INFORMATION
  Report Type: 
  Country: None (occurrence: None)
  Receive Date: 20070816
  Receipt Date: 20060822
  Transmission Date: 20080115
  Serious: Yes (Hospitalization)
  Sender: FDA-Public Use
  Company Number: 2006092841

PATIENT
  Age: 54 Year
  Sex: 0

DRUGS (9)
  1. SULFASALAZINE [Suspect]
     Indication: PSORIATIC ARTHROPATHY
     Dosage: 1000 MG (500MG, 2 IN 1 D), ORAL
     Route: 048
     Dates: start: 20051228
  2. ETANERCEPT (ETANERCEPT) [Suspect]
     Indication: PSORIATIC ARTHROPATHY
     Dosage: 50 MG (1 IN 1 WK), SUBCUTANEOUS
     Route: 058
     Dates: start: 20060125, end: 20060125
  3. TRAZODONE HCL [Concomitant]
  4. RABEPRAZOLE SODIUM [Concomitant]
  5. VICODIN [Concomitant]
  6. ALPRAZOLAM [Concomitant]
  7. LISINOPRIL [Concomitant]
  8. FENOFIBRATE [Concomitant]
  9. ATORVASTATIN CALCIUM [Concomitant]

REACTIONS (1)
  - PANCREATITIS [None]
